FAERS Safety Report 7756971-9 (Version None)
Quarter: 2011Q3

REPORT INFORMATION
  Report Type: 
  Country: None (occurrence: None)
  Receive Date: 20110916
  Receipt Date: 20110916
  Transmission Date: 20111222
  Serious: Yes (Life-Threatening, Hospitalization, Other)
  Sender: FDA-Public Use
  Company Number: None

PATIENT
  Age: 70 Year
  Sex: Male
  Weight: 99.79 kg

DRUGS (3)
  1. SEROQUEL [Suspect]
     Indication: DEPRESSION
     Dosage: 400 MG
     Route: 048
     Dates: start: 19990101, end: 20110731
  2. SEROQUEL [Suspect]
     Indication: ANXIETY
     Dosage: 400 MG
     Route: 048
     Dates: start: 19990101, end: 20110731
  3. SEROQUEL [Suspect]
     Indication: SOMNOLENCE
     Dosage: 400 MG
     Route: 048
     Dates: start: 19990101, end: 20110731

REACTIONS (4)
  - FALL [None]
  - DRUG INTERACTION [None]
  - HYPOTENSION [None]
  - ANKLE FRACTURE [None]
